FAERS Safety Report 6233950-4 (Version None)
Quarter: 2009Q2

REPORT INFORMATION
  Report Type: 
  Country: None (occurrence: None)
  Receive Date: 20090618
  Receipt Date: 20080704
  Transmission Date: 20091009
  Serious: No
  Sender: FDA-Public Use
  Company Number: FR-CELGENEUS-AZAFR200800194

PATIENT
  Sex: Female

DRUGS (10)
  1. VIDAZA [Suspect]
     Route: 058
     Dates: start: 20080506, end: 20080512
  2. VALPROIC ACID SYRUP [Suspect]
     Route: 048
     Dates: start: 20080506, end: 20080512
  3. VESANOID [Concomitant]
     Route: 048
     Dates: start: 20080513, end: 20080602
  4. VASTAREL [Concomitant]
     Route: 048
  5. DIANTALVIC [Concomitant]
     Indication: PAIN
     Route: 048
  6. EFFEXOR [Concomitant]
     Indication: DEPRESSION
     Route: 048
     Dates: end: 20080514
  7. TEMESTA [Concomitant]
     Indication: ANXIETY
  8. LEVOTHYROX [Concomitant]
     Indication: THYROID DISORDER
  9. FLUDEX [Concomitant]
  10. FLECTOR [Concomitant]

REACTIONS (5)
  - DELIRIUM [None]
  - ENCEPHALOPATHY [None]
  - PSYCHOMOTOR HYPERACTIVITY [None]
  - SOMNOLENCE [None]
  - TREMOR [None]
